FAERS Safety Report 4881021-1 (Version None)
Quarter: 2005Q4

REPORT INFORMATION
  Report Type: 
  Country: None (occurrence: None)
  Receive Date: 20051223
  Receipt Date: 20050927
  Transmission Date: 20060501
  Serious: No
  Sender: FDA-Public Use
  Company Number: 05P-163-0312073-00

PATIENT
  Age: 58 Year
  Sex: Female
  Weight: 69.4003 kg

DRUGS (1)
  1. HUMIRA [Suspect]
     Indication: RHEUMATOID ARTHRITIS
     Dosage: 40 MG, 1 IN 2 WK, SUBCUTANEOUS
     Route: 058
     Dates: start: 20050427, end: 20050801

REACTIONS (2)
  - COUGH [None]
  - NASOPHARYNGITIS [None]
